FAERS Safety Report 24603412 (Version 1)
Quarter: 2024Q4

REPORT INFORMATION
  Report Type: Spontaneous
  Country: US (occurrence: None)
  Receive Date: 20241108
  Receipt Date: 20241108
  Transmission Date: 20250115
  Serious: No
  Sender: Public
  Company Number: None

PATIENT
  Sex: 0

DRUGS (4)
  1. PREDNISONE [Suspect]
     Active Substance: PREDNISONE
  2. IBUPROFEN [Suspect]
     Active Substance: IBUPROFEN
  3. IBUPROFEN [Suspect]
     Active Substance: IBUPROFEN
  4. KESIMPTA [Suspect]
     Active Substance: OFATUMUMAB

REACTIONS (2)
  - Confusional state [None]
  - Fatigue [None]
